FAERS Safety Report 7670736-8 (Version None)
Quarter: 2011Q3

REPORT INFORMATION
  Report Type: 
  Country: None (occurrence: None)
  Receive Date: 20110809
  Receipt Date: 20091124
  Transmission Date: 20111222
  Serious: No
  Sender: FDA-Public Use
  Company Number: 2009BI038885

PATIENT
  Age: 56 Year
  Sex: Male

DRUGS (1)
  1. TYSABRI [Suspect]
     Indication: MULTIPLE SCLEROSIS
     Route: 042
     Dates: start: 20090729, end: 20101029

REACTIONS (6)
  - GENERAL SYMPTOM [None]
  - FATIGUE [None]
  - ABDOMINAL DISTENSION [None]
  - LETHARGY [None]
  - FLUSHING [None]
  - MEMORY IMPAIRMENT [None]
